FAERS Safety Report 5261602-6 (Version None)
Quarter: 2007Q1

REPORT INFORMATION
  Report Type: 
  Country: None (occurrence: None)
  Receive Date: 20070307
  Receipt Date: 20070224
  Transmission Date: 20070707
  Serious: Yes (Hospitalization)
  Sender: FDA-Public Use
  Company Number: 2007-00232

PATIENT
  Age: 58 Year
  Sex: Male
  Weight: 73.8 kg

DRUGS (5)
  1. VELCADE [Suspect]
     Indication: WALDENSTROM'S MACROGLOBULINAEMIA
     Dosage: 3.00 MG, INTRAVENOUS
     Route: 042
     Dates: start: 20070130
  2. RITUXIMAB [Suspect]
     Indication: WALDENSTROM'S MACROGLOBULINAEMIA
     Dosage: 710.00 MG, INTRAVENOUS
     Route: 042
     Dates: start: 20070130
  3. BECONASE [Concomitant]
  4. CHLORPHENAMINE (CHLORPHENAMINE) [Concomitant]
  5. ACETAMINOPHEN [Concomitant]

REACTIONS (3)
  - CYTOKINE RELEASE SYNDROME [None]
  - HYPERSENSITIVITY [None]
  - INFUSION RELATED REACTION [None]
